FAERS Safety Report 5065670-6 (Version None)
Quarter: 2006Q3

REPORT INFORMATION
  Report Type: 
  Country: None (occurrence: None)
  Receive Date: 20060714
  Receipt Date: 20060523
  Transmission Date: 20061208
  Serious: No
  Sender: FDA-Public Use
  Company Number: 2006SP002162

PATIENT
  Age: 51 Year
  Sex: Male
  Weight: 104.3273 kg

DRUGS (13)
  1. LUNESTA [Suspect]
     Indication: INSOMNIA
     Dosage: 3 MG;HS;ORAL
     Route: 048
     Dates: start: 20060101, end: 20060401
  2. ACETYLSALICYLIC ACID SRT [Concomitant]
  3. ASCORBIC ACID [Concomitant]
  4. MULTIVITAMIN [Concomitant]
  5. ALLOPURINOL [Concomitant]
  6. CLONIDINE [Concomitant]
  7. HYDROCHLOROTHIAZID [Concomitant]
  8. TARKA [Concomitant]
  9. LEXAPRO [Concomitant]
  10. ACIPHEX [Concomitant]
  11. METFORMIN [Concomitant]
  12. CRESTOR [Concomitant]
  13. TRICOR [Concomitant]

REACTIONS (1)
  - INSOMNIA [None]
